FAERS Safety Report 10042099 (Version 1)
Quarter: 2014Q1

REPORT INFORMATION
  Report Type: Spontaneous
  Country: AU (occurrence: None)
  Receive Date: 20140325
  Receipt Date: 20140325
  Transmission Date: 20141002
  Serious: Yes (Other)
  Sender: FDA-Public Use
  Company Number: 2013000565

PATIENT
  Sex: Female

DRUGS (2)
  1. ACEON [Suspect]
     Indication: HYPERTENSION
     Route: 048
     Dates: start: 20060820, end: 20060821
  2. ALDACTONE (SPIRONOLACTONE) [Concomitant]

REACTIONS (6)
  - Syncope [None]
  - Circulatory collapse [None]
  - Dehydration [None]
  - Syncope [None]
  - Therapy change [None]
  - Hypotension [None]
